FAERS Safety Report 10780559 (Version 2)
Quarter: 2015Q1

REPORT INFORMATION
  Report Type: Spontaneous
  Country: US (occurrence: US)
  Receive Date: 20150210
  Receipt Date: 20150316
  Transmission Date: 20150721
  Serious: No
  Sender: FDA-Public Use
  Company Number: US-009507513-1502USA000668

PATIENT
  Sex: Female

DRUGS (1)
  1. OXYTROL FOR WOMEN [Suspect]
     Active Substance: OXYBUTYNIN
     Indication: POLLAKIURIA
     Dosage: 1 DF, Q4D
     Route: 062

REACTIONS (5)
  - Burning sensation [Unknown]
  - Pruritus [Recovered/Resolved]
  - Hypersensitivity [Unknown]
  - Erythema [Recovered/Resolved]
  - Rash [Recovered/Resolved]
